FAERS Safety Report 6134519-2 (Version None)
Quarter: 2009Q1

REPORT INFORMATION
  Report Type: 
  Country: None (occurrence: None)
  Receive Date: 20090327
  Receipt Date: 20090323
  Transmission Date: 20090719
  Serious: Yes (Hospitalization)
  Sender: FDA-Public Use
  Company Number: US-BRISTOL-MYERS SQUIBB COMPANY-14551055

PATIENT
  Age: 65 Year
  Sex: Male

DRUGS (1)
  1. ABILIFY [Suspect]
     Indication: DELUSION
     Dosage: TOOK ABILIFY FOR MORE THAN ONE YEAR
     Route: 048

REACTIONS (3)
  - BODY TEMPERATURE DECREASED [None]
  - RESPIRATORY FAILURE [None]
  - TACHYCARDIA [None]
